FAERS Safety Report 23555154 (Version 1)
Quarter: 2024Q1

REPORT INFORMATION
  Report Type: Spontaneous
  Country: NL (occurrence: NL)
  Receive Date: 20240222
  Receipt Date: 20240222
  Transmission Date: 20240409
  Serious: Yes (Life-Threatening, Hospitalization)
  Sender: FDA-Public Use
  Company Number: None

PATIENT
  Age: 88 Year
  Sex: Male
  Weight: 82.4 kg

DRUGS (2)
  1. PREDNISONE [Suspect]
     Active Substance: PREDNISONE
     Indication: Giant cell arteritis
     Dosage: 1 PIECE ONCE A DAY , BRAND NAME NOT SPECIFIED
     Route: 065
     Dates: start: 20231108
  2. CLOPIDOGREL [Suspect]
     Active Substance: CLOPIDOGREL BISULFATE
     Indication: Acute myocardial infarction
     Dosage: 1 PIECE ONCE A DAY , BRAND NAME NOT SPECIFIED
     Route: 065
     Dates: start: 20231010, end: 20231201

REACTIONS (1)
  - Leukopenia [Recovered/Resolved]
